FAERS Safety Report 9704019 (Version 2)
Quarter: 2013Q4

REPORT INFORMATION
  Report Type: Spontaneous
  Country: US (occurrence: US)
  Receive Date: 20131122
  Receipt Date: 20131122
  Transmission Date: 20140711
  Serious: No
  Sender: FDA-Public Use
  Company Number: US-BRISTOL-MYERS SQUIBB COMPANY-17408964

PATIENT
  Sex: Male

DRUGS (1)
  1. GLUCOPHAGE XR [Suspect]
     Indication: DIABETES MELLITUS
     Dosage: TABS

REACTIONS (3)
  - Gastric disorder [Unknown]
  - Medication residue present [Unknown]
  - Drug ineffective [Unknown]
